FAERS Safety Report 6265178-6 (Version None)
Quarter: 2009Q3

REPORT INFORMATION
  Report Type: 
  Country: None (occurrence: None)
  Receive Date: 20090709
  Receipt Date: 20090709
  Transmission Date: 20100115
  Serious: Yes (Other)
  Sender: FDA-Public Use
  Company Number: None

PATIENT
  Age: 60 Year
  Sex: Female
  Weight: 57.6068 kg

DRUGS (4)
  1. CLONAZEPAM [Suspect]
     Indication: ANXIETY DISORDER
     Dosage: 1 TABLET 6 TIMES A DAY
     Dates: start: 20090603
  2. LAMICTAL [Concomitant]
  3. PRAVACHOL [Concomitant]
  4. ZETIA [Concomitant]

REACTIONS (3)
  - ANXIETY [None]
  - DEPRESSION [None]
  - PRODUCT SUBSTITUTION ISSUE [None]
